FAERS Safety Report 18368190 (Version 1)
Quarter: 2020Q4

REPORT INFORMATION
  Report Type: Spontaneous
  Country: GB (occurrence: GB)
  Receive Date: 20201009
  Receipt Date: 20201009
  Transmission Date: 20210114
  Serious: Yes (Life-Threatening, Other)
  Sender: FDA-Public Use
  Company Number: GB-HQ SPECIALTY-GB-2020INT000119

PATIENT
  Age: 15 Year
  Sex: Male

DRUGS (5)
  1. CISPLATIN. [Suspect]
     Active Substance: CISPLATIN
     Indication: MEDULLOBLASTOMA
     Dosage: 70 MG/M2, DAY 1 OF CYCLE A, WEEK 1, ALTERNATIVELY REPEATED 4 TIMES WITH CYCLE B
     Route: 065
  2. VINCRISTINE [Concomitant]
     Active Substance: VINCRISTINE
     Indication: MEDULLOBLASTOMA
     Dosage: 1.5 MG/M2, DAY 1 OF CYCLE A, WEEK 1, 2, AND 3 ALTERNATIVELY REPEATED 4 TIMES WITH CYCLE B
     Route: 065
  3. LOMUSTINE. [Suspect]
     Active Substance: LOMUSTINE
     Indication: MEDULLOBLASTOMA
     Dosage: 75 MG/M2, DAY 1 OF CYCLE A, WEEK 1, ALTERNATIVELY REPEATED 4 TIMES WITH CYCLE B
     Route: 065
  4. CYCLOPHOSPHAMIDE. [Concomitant]
     Active Substance: CYCLOPHOSPHAMIDE
     Indication: MEDULLOBLASTOMA
     Dosage: 1000 MG/M2, WEEK 7, ALTERNATIVELY REPEATED 4 TIMES WITH CYCLE A
     Route: 065
  5. VINCRISTINE [Concomitant]
     Active Substance: VINCRISTINE
     Dosage: 1.5 MG/M2, CYCLE B, WEEK 7
     Route: 065

REACTIONS (1)
  - Cystitis haemorrhagic [Recovered/Resolved]
